FAERS Safety Report 8840880 (Version 1)
Quarter: 2012Q4

REPORT INFORMATION
  Report Type: 
  Country: MX (occurrence: MX)
  Receive Date: 20121015
  Receipt Date: 20121015
  Transmission Date: 20130627
  Serious: Yes (Other)
  Sender: FDA-Public Use
  Company Number: PHHY2012MX091149

PATIENT
  Sex: Female

DRUGS (5)
  1. CO-DIOVAN [Suspect]
     Indication: HYPERTENSION
     Dosage: 1 DF, (valsartan 320 mg and hydrocholorothiazide 12.5 mg) per day
     Dates: start: 20120922
  2. LOPRESOR [Concomitant]
     Indication: HYPERTENSION
     Dosage: 1 DF, per day
     Dates: start: 201208
  3. AMARYL [Concomitant]
     Indication: DIABETES MELLITUS
     Dosage: 2 DF, per day
     Dates: start: 201208
  4. LYRICA [Concomitant]
     Indication: NEUROPATHY PERIPHERAL
     Dosage: 1 DF, per day
     Dates: start: 201208
  5. TAFIL [Concomitant]
     Indication: INSOMNIA
     Dosage: 1 DF, per day

REACTIONS (8)
  - Neuropathy peripheral [Recovered/Resolved]
  - Asthenia [Recovered/Resolved]
  - Gastrointestinal pain [Recovered/Resolved]
  - Constipation [Recovered/Resolved]
  - Headache [Recovered/Resolved]
  - Arthralgia [Recovered/Resolved]
  - Tachycardia [Recovered/Resolved]
  - Dizziness [Recovered/Resolved]
